FAERS Safety Report 25316782 (Version 1)
Quarter: 2025Q2

REPORT INFORMATION
  Report Type: Spontaneous
  Country: US (occurrence: US)
  Receive Date: 20250515
  Receipt Date: 20250515
  Transmission Date: 20250716
  Serious: No
  Sender: ELI LILLY AND COMPANY
  Company Number: US-ELI_LILLY_AND_COMPANY-US202505004978

PATIENT
  Age: 82 Year
  Sex: Female

DRUGS (2)
  1. FORTEO [Suspect]
     Active Substance: TERIPARATIDE
     Indication: Osteoporosis
     Route: 065
     Dates: start: 20250415
  2. FORTEO [Suspect]
     Active Substance: TERIPARATIDE
     Indication: Pelvic fracture

REACTIONS (3)
  - Pelvic pain [Unknown]
  - Dysstasia [Unknown]
  - Muscle spasms [Unknown]
